FAERS Safety Report 16538779 (Version 1)
Quarter: 2019Q3

REPORT INFORMATION
  Report Type: Spontaneous
  Country: GB (occurrence: GB)
  Receive Date: 20190708
  Receipt Date: 20190708
  Transmission Date: 20191004
  Serious: Yes (Disabling)
  Sender: FDA-Public Use
  Company Number: GB-ACCORD-137218

PATIENT
  Age: 7 Year
  Sex: Male
  Weight: 34.47 kg

DRUGS (4)
  1. VENTOLIN [Concomitant]
     Active Substance: ALBUTEROL SULFATE
  2. BECLOMETASONE [Concomitant]
     Active Substance: BECLOMETHASONE DIPROPIONATE
  3. MONTELUKAST [Suspect]
     Active Substance: MONTELUKAST SODIUM
     Indication: ASTHMA
     Dosage: ALSO TAKEN 4 MG FROM 15-MAY-2015
     Route: 048
     Dates: end: 20170412
  4. SALMETEROL [Concomitant]
     Active Substance: SALMETEROL

REACTIONS (21)
  - Fear [Not Recovered/Not Resolved]
  - Mood swings [Not Recovered/Not Resolved]
  - Sleep disorder [Not Recovered/Not Resolved]
  - Dyskinesia [Not Recovered/Not Resolved]
  - Tic [Not Recovered/Not Resolved]
  - Headache [Not Recovered/Not Resolved]
  - Anxiety [Not Recovered/Not Resolved]
  - Abnormal weight gain [Not Recovered/Not Resolved]
  - Pain in extremity [Not Recovered/Not Resolved]
  - Aggression [Not Recovered/Not Resolved]
  - Initial insomnia [Not Recovered/Not Resolved]
  - Diarrhoea [Not Recovered/Not Resolved]
  - Diplopia [Unknown]
  - Nausea [Not Recovered/Not Resolved]
  - Depression [Recovered/Resolved with Sequelae]
  - Suicidal ideation [Recovering/Resolving]
  - Sleep terror [Not Recovered/Not Resolved]
  - Irritability [Not Recovered/Not Resolved]
  - Eye disorder [Not Recovered/Not Resolved]
  - Arthralgia [Not Recovered/Not Resolved]
  - Abdominal pain upper [Not Recovered/Not Resolved]

NARRATIVE: CASE EVENT DATE: 20150601
